FAERS Safety Report 23132690 (Version 1)
Quarter: 2023Q4

REPORT INFORMATION
  Report Type: Spontaneous
  Country: US (occurrence: US)
  Receive Date: 20231101
  Receipt Date: 20231101
  Transmission Date: 20240110
  Serious: Yes (Other)
  Sender: FDA-Public Use
  Company Number: US-AUROBINDO-AUR-APL-2023-065909

PATIENT
  Age: 6 Week
  Sex: Male

DRUGS (5)
  1. URSODIOL [Suspect]
     Active Substance: URSODIOL
     Indication: Jaundice cholestatic
     Dosage: 20 MILLIGRAM/KILOGRAM, DAILY Y IN DIVIDED DOSES
     Route: 065
  2. VITAMIN A [Suspect]
     Active Substance: VITAMIN A
     Indication: Jaundice cholestatic
     Dosage: UNK
     Route: 065
  3. VITAMIN D [Suspect]
     Active Substance: VITAMIN D NOS
     Indication: Jaundice cholestatic
     Dosage: UNK
     Route: 065
  4. VITAMIN E [Suspect]
     Active Substance: .ALPHA.-TOCOPHEROL
     Indication: Jaundice cholestatic
     Dosage: UNK
     Route: 065
  5. VITAMIN K [Concomitant]
     Active Substance: PHYTONADIONE
     Indication: Supplementation therapy
     Dosage: UNK
     Route: 042

REACTIONS (1)
  - Drug ineffective [Unknown]

NARRATIVE: CASE EVENT DATE: 20200501
